FAERS Safety Report 22182254 (Version 2)
Quarter: 2023Q2

REPORT INFORMATION
  Report Type: Spontaneous
  Country: BR (occurrence: BR)
  Receive Date: 20230406
  Receipt Date: 20230426
  Transmission Date: 20230722
  Serious: Yes (Hospitalization, Other)
  Sender: FDA-Public Use
  Company Number: BR-ELI_LILLY_AND_COMPANY-BR202303016303

PATIENT
  Age: 84 Year
  Sex: Female

DRUGS (6)
  1. BASAGLAR [Suspect]
     Active Substance: INSULIN GLARGINE
     Indication: Diabetes mellitus
     Dosage: UNK UNK, BID
     Route: 065
     Dates: start: 202210
  2. BASAGLAR [Suspect]
     Active Substance: INSULIN GLARGINE
     Indication: Diabetes mellitus
     Dosage: UNK UNK, BID
     Route: 065
     Dates: start: 202210
  3. BASAGLAR [Suspect]
     Active Substance: INSULIN GLARGINE
     Dosage: 26 U, DAILY
     Route: 065
  4. BASAGLAR [Suspect]
     Active Substance: INSULIN GLARGINE
     Dosage: 26 U, DAILY
     Route: 065
  5. METFORMIN [Concomitant]
     Active Substance: METFORMIN HYDROCHLORIDE
     Indication: Diabetes mellitus
  6. NPH INSULIN [Concomitant]
     Active Substance: INSULIN BEEF
     Indication: Diabetes mellitus

REACTIONS (5)
  - Deafness unilateral [Unknown]
  - Urinary tract infection [Unknown]
  - Fall [Unknown]
  - Femur fracture [Unknown]
  - Injection site pain [Unknown]
